FAERS Safety Report 7568551-9 (Version None)
Quarter: 2011Q2

REPORT INFORMATION
  Report Type: 
  Country: None (occurrence: None)
  Receive Date: 20110623
  Receipt Date: 20110618
  Transmission Date: 20111010
  Serious: Yes (Other)
  Sender: FDA-Public Use
  Company Number: IN-PFIZER INC-2011135094

PATIENT
  Age: 75 Year
  Sex: Male

DRUGS (3)
  1. DILANTIN [Suspect]
     Dosage: 100 MG, 2X/DAY
     Route: 048
     Dates: start: 20110608, end: 20110616
  2. ACETYLSALICYLIC ACID/CLOPIDOGREL [Concomitant]
     Indication: ANTICOAGULANT THERAPY
     Dosage: 75 MG, 1X/DAY
     Dates: start: 20110608
  3. DILANTIN [Suspect]
     Indication: CONVULSION
     Dosage: 100 MG, 2X/DAY
     Route: 048
     Dates: start: 20030101, end: 20090101

REACTIONS (3)
  - ANTICONVULSANT DRUG LEVEL DECREASED [None]
  - DRUG EFFECT DECREASED [None]
  - OEDEMA PERIPHERAL [None]
